FAERS Safety Report 9326779 (Version 1)
Quarter: 2013Q2

REPORT INFORMATION
  Report Type: Spontaneous
  Country: US (occurrence: US)
  Receive Date: 20130604
  Receipt Date: 20130604
  Transmission Date: 20140414
  Serious: Yes (Other)
  Sender: FDA-Public Use
  Company Number: US-GENZYME-FABR-1003285

PATIENT
  Age: 57 Year
  Sex: Male

DRUGS (2)
  1. FABRAZYME [Suspect]
     Indication: FABRY^S DISEASE
     Dosage: 70 MG, UNK
     Route: 042
     Dates: start: 20130329
  2. TYLENOL [Concomitant]
     Indication: PREMEDICATION
     Dosage: UNK
     Route: 065

REACTIONS (8)
  - Bundle branch block right [Unknown]
  - Left ventricular hypertrophy [Unknown]
  - Muscle rigidity [Unknown]
  - Agitation [Unknown]
  - Anxiety [Unknown]
  - Feeling cold [Unknown]
  - Chills [Unknown]
  - Blood pressure decreased [Unknown]
